FAERS Safety Report 21440073 (Version 1)
Quarter: 2022Q4

REPORT INFORMATION
  Report Type: Spontaneous
  Country: US (occurrence: None)
  Receive Date: 20221007
  Receipt Date: 20221007
  Transmission Date: 20230113
  Serious: Yes (Disabling, Other)
  Sender: FDA-Public Use
  Company Number: None

PATIENT
  Age: 24 Year
  Sex: Female
  Weight: 58.5 kg

DRUGS (1)
  1. LEVOFLOXACIN [Suspect]
     Active Substance: LEVOFLOXACIN
     Indication: Urinary tract infection
     Route: 048
     Dates: start: 20220629, end: 20220706

REACTIONS (10)
  - Pain [None]
  - Influenza like illness [None]
  - Depressed level of consciousness [None]
  - Headache [None]
  - Migraine [None]
  - Fatigue [None]
  - Anisocoria [None]
  - Hypoaesthesia [None]
  - Impaired driving ability [None]
  - Neuropathy peripheral [None]

NARRATIVE: CASE EVENT DATE: 20220819
